FAERS Safety Report 9116407 (Version 1)
Quarter: 2013Q1

REPORT INFORMATION
  Report Type: Spontaneous
  Country: GB (occurrence: GB)
  Receive Date: 20130225
  Receipt Date: 20130225
  Transmission Date: 20140127
  Serious: Yes (Hospitalization)
  Sender: FDA-Public Use
  Company Number: GB-TEVA-388181ISR

PATIENT
  Age: 58 Year
  Sex: Male
  Weight: 88.9 kg

DRUGS (3)
  1. TRAMADOL [Suspect]
     Indication: ANALGESIC THERAPY
     Dosage: 1 - 2 50MG TABLETS EVERY 4 HOURS. ONLY TOOK 1 2X50MG DOSE
     Route: 048
     Dates: start: 20130121, end: 20130121
  2. AMLODIPINE [Concomitant]
  3. LOSARTAN [Concomitant]

REACTIONS (5)
  - Vomiting [Recovered/Resolved]
  - Paraesthesia [Recovered/Resolved]
  - Balance disorder [Not Recovered/Not Resolved]
  - Dizziness [Not Recovered/Not Resolved]
  - Gait disturbance [Not Recovered/Not Resolved]
